FAERS Safety Report 7794376-5 (Version None)
Quarter: 2011Q4

REPORT INFORMATION
  Report Type: 
  Country: None (occurrence: None)
  Receive Date: 20111004
  Receipt Date: 20110921
  Transmission Date: 20120403
  Serious: Yes (Hospitalization, Other)
  Sender: FDA-Public Use
  Company Number: US-ELI_LILLY_AND_COMPANY-US201108009476

PATIENT
  Sex: Female

DRUGS (11)
  1. FORTEO [Suspect]
     Dosage: 20 UG, QD
  2. GLYCOLAX [Concomitant]
  3. FLEXERIL [Concomitant]
  4. ANTIHYPERTENSIVES [Concomitant]
  5. CELEXA [Concomitant]
  6. VALIUM [Concomitant]
  7. NORVASC [Concomitant]
  8. FORTEO [Suspect]
     Indication: OSTEOPOROSIS
     Dosage: 20 UG, QD
     Dates: start: 20110826, end: 20110826
  9. FORTEO [Suspect]
     Dosage: 20 UG, QD
  10. NORCO [Concomitant]
  11. ATENOLOL [Concomitant]

REACTIONS (8)
  - BACK PAIN [None]
  - FREQUENT BOWEL MOVEMENTS [None]
  - ABNORMAL DREAMS [None]
  - CONFUSIONAL STATE [None]
  - ALCOHOL INTOLERANCE [None]
  - DIZZINESS [None]
  - FALL [None]
  - FEELING ABNORMAL [None]
